FAERS Safety Report 14176004 (Version 1)
Quarter: 2017Q4

REPORT INFORMATION
  Report Type: Spontaneous
  Country: JP (occurrence: JP)
  Receive Date: 20171109
  Receipt Date: 20171109
  Transmission Date: 20180321
  Serious: Yes (Other)
  Sender: FDA-Public Use
  Company Number: JP-PFIZER INC-2017481831

PATIENT
  Age: 53 Year
  Sex: Female

DRUGS (1)
  1. CELECOX [Suspect]
     Active Substance: CELECOXIB
     Dosage: UNK
     Route: 065
     Dates: start: 201312, end: 201312

REACTIONS (3)
  - Anaemia [Unknown]
  - Haemorrhagic erosive gastritis [Unknown]
  - Duodenal ulcer haemorrhage [Unknown]
